FAERS Safety Report 20039005 (Version 2)
Quarter: 2021Q4

REPORT INFORMATION
  Report Type: Other
  Country: None (occurrence: PE)
  Receive Date: 20211105
  Receipt Date: 20211105
  Transmission Date: 20220303
  Serious: Yes (Hospitalization)
  Sender: FDA-Public Use
  Company Number: PE-B.Braun Medical Inc.-2121531

PATIENT
  Age: 49 Year
  Sex: Male

DRUGS (1)
  1. MEROPENEM\SODIUM CHLORIDE [Suspect]
     Active Substance: MEROPENEM\SODIUM CHLORIDE

REACTIONS (10)
  - Drug ineffective [Recovered/Resolved]
  - Rash vesicular [Recovered/Resolved]
  - Respiratory distress [Recovered/Resolved]
  - Mental status changes [Recovered/Resolved]
  - Purpura [Recovered/Resolved]
  - Lymphadenopathy [Recovered/Resolved]
  - Oedema peripheral [Recovered/Resolved]
  - Acute kidney injury [Recovered/Resolved]
  - Pleural effusion [Recovered/Resolved]
  - Drug reaction with eosinophilia and systemic symptoms [Recovered/Resolved]
